FAERS Safety Report 17502381 (Version 1)
Quarter: 2020Q1

REPORT INFORMATION
  Report Type: Spontaneous
  Country: US (occurrence: US)
  Receive Date: 20200225
  Receipt Date: 20200225
  Transmission Date: 20200409
  Serious: No
  Sender: FDA-Public Use
  Company Number: None

PATIENT
  Age: 56 Year
  Sex: Female

DRUGS (2)
  1. DOXYCYCLINE. [Concomitant]
     Active Substance: DOXYCYCLINE
  2. MAVYRET [Suspect]
     Active Substance: GLECAPREVIR\PIBRENTASVIR
     Indication: HEPATITIS C
     Dosage: ?          OTHER DOSE:100-40MG;OTHER FREQUENCY:3 TABLETS DAILY;?
     Route: 048
     Dates: start: 20200219

REACTIONS (3)
  - Contusion [None]
  - Pruritus [None]
  - Ulcer [None]

NARRATIVE: CASE EVENT DATE: 20200221
